FAERS Safety Report 12269437 (Version 17)
Quarter: 2019Q4

REPORT INFORMATION
  Report Type: Report from Study
  Country: CA (occurrence: CA)
  Receive Date: 20160414
  Receipt Date: 20191217
  Transmission Date: 20200122
  Serious: Yes (Other)
  Sender: FDA-Public Use
  Company Number: PHHY2009CA21048

PATIENT
  Age: 56 Year
  Sex: Male

DRUGS (6)
  1. SANDOSTATIN LAR DEPOT [Suspect]
     Active Substance: OCTREOTIDE ACETATE
     Dosage: 10 MG, QMO
     Route: 030
  2. SANDOSTATIN LAR DEPOT [Suspect]
     Active Substance: OCTREOTIDE ACETATE
     Indication: GASTROINTESTINAL NECROSIS
     Dosage: 10 MG, QMO
     Route: 030
     Dates: start: 20000101
  3. PREDNISONE. [Suspect]
     Active Substance: PREDNISONE
     Indication: PRODUCT USED FOR UNKNOWN INDICATION
     Dosage: UNK
     Route: 065
     Dates: end: 20190416
  4. PROLIA [Suspect]
     Active Substance: DENOSUMAB
     Indication: PRODUCT USED FOR UNKNOWN INDICATION
     Route: 065
     Dates: start: 20160119
  5. SANDOSTATIN [Suspect]
     Active Substance: OCTREOTIDE ACETATE
     Indication: GASTROINTESTINAL NECROSIS
     Route: 058
  6. SANDOSTATIN LAR DEPOT [Suspect]
     Active Substance: OCTREOTIDE ACETATE
     Dosage: 30 MG, QMO
     Route: 030
     Dates: start: 20080402

REACTIONS (21)
  - Blood pressure decreased [Unknown]
  - Nasopharyngitis [Unknown]
  - Cough [Unknown]
  - Blood urine present [Unknown]
  - Vomiting [Recovered/Resolved]
  - Pemphigoid [Unknown]
  - Pleural effusion [Unknown]
  - Anaemia [Unknown]
  - Cellulitis [Unknown]
  - Product use in unapproved indication [Unknown]
  - Coccydynia [Unknown]
  - Skin disorder [Unknown]
  - Back pain [Unknown]
  - Fatigue [Unknown]
  - Pruritus [Unknown]
  - Blood pressure systolic increased [Unknown]
  - Stress [Unknown]
  - Erythema [Unknown]
  - Pyrexia [Unknown]
  - Urinary tract infection [Recovering/Resolving]
  - Pain in extremity [Unknown]

NARRATIVE: CASE EVENT DATE: 20140113
